FAERS Safety Report 10482764 (Version 1)
Quarter: 2014Q3

REPORT INFORMATION
  Report Type: Spontaneous
  Country: FR (occurrence: FR)
  Receive Date: 20140929
  Receipt Date: 20140929
  Transmission Date: 20150326
  Serious: Yes (Other)
  Sender: FDA-Public Use
  Company Number: FR-MERCK-1409FRA012201

PATIENT
  Age: 68 Year
  Sex: Female

DRUGS (12)
  1. PAROXETINE [Concomitant]
     Active Substance: PAROXETINE\PAROXETINE HYDROCHLORIDE
  2. LASILIX [Concomitant]
     Active Substance: FUROSEMIDE
  3. AMLOR [Concomitant]
     Active Substance: AMLODIPINE BESYLATE
  4. INEXIUM (ESOMEPRAZOLE MAGNESIUM) [Concomitant]
     Active Substance: ESOMEPRAZOLE MAGNESIUM
  5. NEBIVOLOL [Concomitant]
     Active Substance: NEBIVOLOL
  6. LEVOTHYROX [Concomitant]
     Active Substance: LEVOTHYROXINE
  7. DOLIPRANE [Concomitant]
     Active Substance: ACETAMINOPHEN
  8. XANAX [Concomitant]
     Active Substance: ALPRAZOLAM
  9. INVANZ [Suspect]
     Active Substance: ERTAPENEM SODIUM
     Indication: URINARY TRACT INFECTION
     Dosage: UNK, QD
     Route: 042
     Dates: start: 20140822, end: 20140829
  10. RIFAMPIN. [Concomitant]
     Active Substance: RIFAMPIN
  11. MIRCERA [Concomitant]
     Active Substance: PEGZEREPOETIN ALFA
  12. CALCIPARINE [Concomitant]
     Active Substance: HEPARIN CALCIUM

REACTIONS (2)
  - Pyrexia [Recovered/Resolved]
  - Confusional state [Recovered/Resolved]

NARRATIVE: CASE EVENT DATE: 20140826
